FAERS Safety Report 9868254 (Version 2)
Quarter: 2014Q1

REPORT INFORMATION
  Report Type: Spontaneous
  Country: US (occurrence: US)
  Receive Date: 20140204
  Receipt Date: 20140228
  Transmission Date: 20141002
  Serious: Yes (Hospitalization)
  Sender: FDA-Public Use
  Company Number: US-JNJFOC-20140117015

PATIENT
  Age: 65 Year
  Sex: Male

DRUGS (18)
  1. INVOKANA [Suspect]
     Indication: TYPE 2 DIABETES MELLITUS
     Route: 048
     Dates: start: 20131020
  2. ALLOPURINOL [Concomitant]
     Route: 048
  3. ATORVASTATIN [Concomitant]
     Indication: BLOOD CHOLESTEROL INCREASED
     Route: 048
  4. BUTALBITAL COMPOUND [Concomitant]
     Indication: MIGRAINE
     Dosage: 50-325-40 MG
     Route: 048
  5. CITALOPRAM [Concomitant]
     Indication: PAIN
  6. DICYCLOMINE [Concomitant]
     Indication: ABDOMINAL PAIN UPPER
     Dosage: 20 MG 30 MINUTES BEFORE MEALS
  7. FENOFIBRATE [Concomitant]
     Indication: LIPIDS ABNORMAL
     Route: 048
  8. GOLD BOND ORIGINAL STRENGTH [Concomitant]
     Dosage: 79%-4%-15%
     Route: 061
  9. LAMISIL [Concomitant]
     Route: 061
  10. LANTUS [Concomitant]
     Dosage: 100 UNIT/ML TWICE DAILY
     Route: 058
  11. LOSARTAN/HYDROCHLOROTHIAZIDE [Concomitant]
     Dosage: 50/12.5 ONCE IN AM
     Route: 048
  12. LOVAZA [Concomitant]
     Route: 048
  13. METOPROLOL SUCCINATE [Concomitant]
     Route: 048
  14. NOVOLOG [Concomitant]
     Dosage: 100 UNIT/ML BEFORE MEALS DAILY
     Route: 058
  15. PLAVIX [Concomitant]
     Route: 048
  16. TERAZOSIN [Concomitant]
     Indication: PROSTATIC DISORDER
     Route: 048
  17. VERAPAMIL [Concomitant]
  18. ULTRACET [Concomitant]
     Indication: PAIN

REACTIONS (3)
  - Lactic acidosis [Unknown]
  - Sepsis [Recovering/Resolving]
  - Neuropathy peripheral [Recovering/Resolving]
